FAERS Safety Report 10840122 (Version 1)
Quarter: 2015Q1

REPORT INFORMATION
  Report Type: Spontaneous
  Country: US (occurrence: US)
  Receive Date: 20150220
  Receipt Date: 20150220
  Transmission Date: 20150721
  Serious: No
  Sender: FDA-Public Use
  Company Number: US-BRISTOL-MYERS SQUIBB COMPANY-BMS-2015-010792

PATIENT
  Sex: Female
  Weight: 54 kg

DRUGS (1)
  1. ABILIFY [Suspect]
     Active Substance: ARIPIPRAZOLE
     Indication: ANXIETY
     Dosage: 15 MG, UNK
     Route: 065

REACTIONS (5)
  - Headache [Unknown]
  - Drug dose omission [Unknown]
  - Adverse event [Unknown]
  - Dizziness [Unknown]
  - Off label use [Unknown]
